FAERS Safety Report 5786091-4 (Version None)
Quarter: 2008Q2

REPORT INFORMATION
  Report Type: 
  Country: None (occurrence: None)
  Receive Date: 20080620
  Receipt Date: 20080620
  Transmission Date: 20081010
  Serious: Yes (Other)
  Sender: FDA-Public Use
  Company Number: None

PATIENT
  Age: 22 Year
  Sex: Female
  Weight: 58.9676 kg

DRUGS (1)
  1. BUPROPION HCL [Suspect]
     Indication: DEPRESSION
     Dosage: 100MG ONCE A DAY PO
     Route: 048
     Dates: start: 20080520, end: 20080619

REACTIONS (2)
  - ADVERSE DRUG REACTION [None]
  - PHARMACEUTICAL PRODUCT COMPLAINT [None]
